FAERS Safety Report 21241748 (Version 1)
Quarter: 2022Q3

REPORT INFORMATION
  Report Type: Spontaneous
  Country: GB (occurrence: GB)
  Receive Date: 20220823
  Receipt Date: 20220823
  Transmission Date: 20221027
  Serious: Yes (Other)
  Sender: FDA-Public Use
  Company Number: None

PATIENT
  Age: 71 Year
  Sex: Male
  Weight: 98 kg

DRUGS (10)
  1. IBUPROFEN [Suspect]
     Active Substance: IBUPROFEN
     Indication: Product used for unknown indication
     Dosage: UNK (GEL)
     Route: 065
     Dates: start: 20220803
  2. AMITRIPTYLINE HYDROCHLORIDE [Concomitant]
     Active Substance: AMITRIPTYLINE HYDROCHLORIDE
     Indication: Pain
     Dosage: 1 DOSAGE FORM, QD, (AT NIGHT TO HELP PAIN) (UNCOATED)
     Route: 048
     Dates: start: 20210212
  3. AMOXICILLIN [Concomitant]
     Active Substance: AMOXICILLIN
     Indication: Product used for unknown indication
     Dosage: 3 DOSAGE FORM, QD
     Route: 065
     Dates: start: 20220509, end: 20220516
  4. BECLOMETHASONE DIPROPIONATE [Concomitant]
     Active Substance: BECLOMETHASONE DIPROPIONATE
     Indication: Product used for unknown indication
     Dosage: 4 DOSAGE FORM, QD
     Dates: start: 20200224
  5. CODEINE PHOSPHATE [Concomitant]
     Active Substance: CODEINE PHOSPHATE
     Indication: Product used for unknown indication
     Dosage: UNK (ONE OR TWO TABLETS TO BE TAKEN UP TO FOUR TIME) (UNCOATED)
     Route: 048
     Dates: start: 20220803
  6. DOXAZOSIN [Concomitant]
     Active Substance: DOXAZOSIN MESYLATE
     Indication: Product used for unknown indication
     Dosage: 2 DOSAGE FORM, QD (UNCOATED)
     Route: 048
     Dates: start: 20210513
  7. DOXYCYCLINE [Concomitant]
     Active Substance: DOXYCYCLINE
     Indication: Product used for unknown indication
     Dosage: 2 DOSAGE FORM, (TO BE TAKEN IMMEDIATELY THEN ONE)
     Route: 065
     Dates: start: 20220504, end: 20220509
  8. FENBID [Concomitant]
     Indication: Pain
     Dosage: 3 DOSAGE FORM, QD
     Route: 065
     Dates: start: 20220725
  9. ACETAMINOPHEN [Concomitant]
     Active Substance: ACETAMINOPHEN
     Indication: Product used for unknown indication
     Dosage: UNK, QID (ONE TO TWO TO BE TAKEN AS REQUEST)
     Route: 065
     Dates: start: 20190214
  10. ALBUTEROL [Concomitant]
     Active Substance: ALBUTEROL
     Indication: Cough
     Dosage: UNK (1-2 SPRAYS AS REQUIRED)
     Route: 065
     Dates: start: 20200224

REACTIONS (1)
  - Lip swelling [Recovered/Resolved]

NARRATIVE: CASE EVENT DATE: 20220803
